FAERS Safety Report 8585641-2 (Version None)
Quarter: 2012Q3

REPORT INFORMATION
  Report Type: 
  Country: None (occurrence: None)
  Receive Date: 20120810
  Receipt Date: 20120806
  Transmission Date: 20120928
  Serious: Yes (Other)
  Sender: FDA-Public Use
  Company Number: BR-ABBOTT-12P-020-0908312-00

PATIENT
  Sex: Male

DRUGS (1)
  1. DEPAKENE [Suspect]
     Indication: SEDATIVE THERAPY
     Dates: start: 20120201, end: 20120501

REACTIONS (6)
  - DRUG ABUSE [None]
  - SUICIDAL IDEATION [None]
  - UNEVALUABLE EVENT [None]
  - VOMITING [None]
  - INCORRECT DOSE ADMINISTERED [None]
  - SNORING [None]
